FAERS Safety Report 11097248 (Version 2)
Quarter: 2015Q2

REPORT INFORMATION
  Report Type: Spontaneous
  Country: US (occurrence: US)
  Receive Date: 20150507
  Receipt Date: 20150622
  Transmission Date: 20150821
  Serious: Yes (Other)
  Sender: FDA-Public Use
  Company Number: US-PFIZER INC-2015151195

PATIENT
  Age: 80 Year
  Sex: Female
  Weight: 57 kg

DRUGS (4)
  1. PREMARIN [Suspect]
     Active Substance: ESTROGENS, CONJUGATED
     Indication: VULVOVAGINAL BURNING SENSATION
  2. FLU SHOT [Suspect]
     Active Substance: INFLUENZA VIRUS VACCINE
     Indication: IMMUNISATION
     Dosage: 1 DF, SINGLE
     Dates: start: 2015
  3. PREMARIN [Suspect]
     Active Substance: ESTROGENS, CONJUGATED
     Indication: VULVOVAGINAL PAIN
  4. PREMARIN [Suspect]
     Active Substance: ESTROGENS, CONJUGATED
     Indication: VULVOVAGINAL DRYNESS
     Dosage: 0.625 MG, ONCE A DAY (NIGHTLY BEFORE BED)
     Route: 067

REACTIONS (13)
  - Depression [Unknown]
  - Condition aggravated [Unknown]
  - Pain in extremity [Unknown]
  - Wrong technique in drug usage process [Unknown]
  - Incorrect dose administered [Not Recovered/Not Resolved]
  - Anxiety [Unknown]
  - Drug ineffective [Unknown]
  - Hypertension [Unknown]
  - Urinary tract infection [Unknown]
  - Disorientation [Unknown]
  - Panic attack [Unknown]
  - Suicidal ideation [Unknown]
  - Feeling abnormal [Unknown]

NARRATIVE: CASE EVENT DATE: 2015
